FAERS Safety Report 8577588-2 (Version None)
Quarter: 2012Q3

REPORT INFORMATION
  Report Type: 
  Country: None (occurrence: None)
  Receive Date: 20120807
  Receipt Date: 20120801
  Transmission Date: 20120928
  Serious: Yes (Hospitalization)
  Sender: FDA-Public Use
  Company Number: JP-BAYER-2012-075288

PATIENT
  Age: 72 Year
  Sex: Female
  Weight: 46 kg

DRUGS (3)
  1. DENOSUMAB [Concomitant]
     Indication: METASTASES TO BONE
     Dosage: UNK
     Dates: start: 20120101
  2. NEXAVAR [Suspect]
     Dosage: 200 MG, BID
     Route: 048
     Dates: start: 20120130, end: 20120522
  3. NEXAVAR [Suspect]
     Dosage: 400 MG, QD
     Route: 048
     Dates: start: 20120627, end: 20120711

REACTIONS (2)
  - HEPATIC FUNCTION ABNORMAL [None]
  - BLOOD BILIRUBIN INCREASED [None]
